FAERS Safety Report 7916948-7 (Version None)
Quarter: 2011Q4

REPORT INFORMATION
  Report Type: 
  Country: None (occurrence: None)
  Receive Date: 20111114
  Receipt Date: 20111025
  Transmission Date: 20120403
  Serious: Yes (Hospitalization)
  Sender: FDA-Public Use
  Company Number: 020724

PATIENT
  Age: 72 Year
  Sex: Female
  Weight: 45.8 kg

DRUGS (10)
  1. RHEUMATREX [Concomitant]
  2. ASTAT (LANOCONAZOLE) [Concomitant]
  3. AMARYL [Concomitant]
  4. VOGLIBOSE (VOGLIBOSE) [Concomitant]
  5. PEGAPTANIB SODIUM;PLACEBO(CODE NOT BROKEN) UNKNOWN [Suspect]
     Indication: DIABETIC RETINAL OEDEMA
     Dosage: LEFT EYE
     Dates: start: 20110621
  6. SOFTEAR (CYANOCOBALAMIN) [Concomitant]
  7. ACTOS [Concomitant]
  8. RABEPRAZOLE SODIUM [Concomitant]
  9. FOLIC ACID [Concomitant]
  10. SENNARIDE (SENNOSIDE A+B) [Concomitant]

REACTIONS (3)
  - CONDITION AGGRAVATED [None]
  - ANGLE CLOSURE GLAUCOMA [None]
  - CATARACT [None]
